FAERS Safety Report 4999307-9 (Version None)
Quarter: 2006Q2

REPORT INFORMATION
  Report Type: 
  Country: None (occurrence: None)
  Receive Date: 20060509
  Receipt Date: 20060509
  Transmission Date: 20061013
  Serious: Yes (Hospitalization)
  Sender: FDA-Public Use
  Company Number: None

PATIENT
  Age: 61 Year
  Sex: Male
  Weight: 78.0187 kg

DRUGS (1)
  1. ERBITUX [Suspect]
     Indication: NEOPLASM MALIGNANT
     Dosage: 780MG   X1    IV DRIP
     Route: 041
     Dates: start: 20050627, end: 20050627

REACTIONS (6)
  - BODY TEMPERATURE INCREASED [None]
  - COLD SWEAT [None]
  - HYPERHIDROSIS [None]
  - HYPOTENSION [None]
  - PRODUCTIVE COUGH [None]
  - SPUTUM DISCOLOURED [None]
